FAERS Safety Report 8257487-6 (Version None)
Quarter: 2012Q2

REPORT INFORMATION
  Report Type: 
  Country: None (occurrence: None)
  Receive Date: 20120403
  Receipt Date: 20111216
  Transmission Date: 20120825
  Serious: No
  Sender: FDA-Public Use
  Company Number: PHEH2011US04711

PATIENT
  Sex: Female
  Weight: 70 kg

DRUGS (5)
  1. GILENYA [Suspect]
     Indication: MULTIPLE SCLEROSIS
     Dosage: 0.5 MG, QD
     Route: 048
     Dates: start: 20110707, end: 20111216
  2. LOVASTATIN [Concomitant]
     Route: 048
     Dates: start: 20050101
  3. CALCIUM CARBONATE [Concomitant]
     Indication: HYPOCALCAEMIA
     Dosage: UNK UKN, BID
     Route: 048
     Dates: start: 20070101
  4. SYNTHROID [Concomitant]
     Indication: HYPOTHYROIDISM
     Route: 048
     Dates: start: 20050101
  5. AMBIEN [Concomitant]
     Indication: INSOMNIA
     Dosage: UNK UKN, QHS
     Route: 048
     Dates: start: 20090101

REACTIONS (6)
  - HEPATIC ENZYME INCREASED [None]
  - DYSPNOEA [None]
  - COUGH [None]
  - CHEST PAIN [None]
  - DYSPNOEA EXERTIONAL [None]
  - CHEST DISCOMFORT [None]
